FAERS Safety Report 16122425 (Version 4)
Quarter: 2019Q2

REPORT INFORMATION
  Report Type: Spontaneous
  Country: US (occurrence: US)
  Receive Date: 20190327
  Receipt Date: 20190522
  Transmission Date: 20190711
  Serious: No
  Sender: FDA-Public Use
  Company Number: US-CELGENEUS-USA-20190307061

PATIENT
  Age: 60 Year
  Sex: Female

DRUGS (4)
  1. OTEZLA [Suspect]
     Active Substance: APREMILAST
     Indication: PSORIASIS
     Dosage: TITRATION
     Route: 048
     Dates: start: 20190219
  2. CALCIUM [Concomitant]
     Active Substance: CALCIUM
     Indication: PRODUCT USED FOR UNKNOWN INDICATION
     Route: 065
  3. OTEZLA [Suspect]
     Active Substance: APREMILAST
     Indication: PSORIATIC ARTHROPATHY
     Dosage: 60 MILLIGRAM
     Route: 048
     Dates: start: 20190304
  4. MAGNESIUM [Concomitant]
     Active Substance: MAGNESIUM
     Indication: PRODUCT USED FOR UNKNOWN INDICATION
     Route: 065

REACTIONS (17)
  - Diarrhoea [Unknown]
  - Abdominal pain upper [Not Recovered/Not Resolved]
  - Hypophagia [Unknown]
  - Influenza [Unknown]
  - Nasopharyngitis [Unknown]
  - Asthenia [Unknown]
  - Insomnia [Unknown]
  - Weight decreased [Unknown]
  - Headache [Recovered/Resolved]
  - Nausea [Unknown]
  - Sinusitis [Unknown]
  - Fatigue [Unknown]
  - Dyspepsia [Unknown]
  - Decreased appetite [Unknown]
  - Vomiting [Unknown]
  - Abdominal discomfort [Unknown]
  - Product dose omission [Unknown]

NARRATIVE: CASE EVENT DATE: 2019
